FAERS Safety Report 10213947 (Version 1)
Quarter: 2014Q2

REPORT INFORMATION
  Report Type: Spontaneous
  Country: TR (occurrence: None)
  Receive Date: 20140529
  Receipt Date: 20140529
  Transmission Date: 20141212
  Serious: Yes (Hospitalization, Other)
  Sender: FDA-Public Use
  Company Number: 2014AP002800

PATIENT
  Age: 17 Year
  Sex: Female

DRUGS (1)
  1. RISPERIDONE (RISPERIDONE) UNKNOWN [Suspect]
     Indication: PRODUCT USED FOR UNKNOWN INDICATION
     Dosage: 19 MG, SINGLE, UNKNOWN

REACTIONS (7)
  - Suicide attempt [None]
  - Sinus tachycardia [None]
  - Swollen tongue [None]
  - Stridor [None]
  - Angioedema [None]
  - Dystonia [None]
  - Dyspnoea [None]
